FAERS Safety Report 25011900 (Version 2)
Quarter: 2025Q2

REPORT INFORMATION
  Report Type: Spontaneous
  Country: AT (occurrence: AT)
  Receive Date: 20250226
  Receipt Date: 20250401
  Transmission Date: 20250716
  Serious: Yes (Other)
  Sender: ALEXION PHARMACEUTICALS
  Company Number: AT-AstraZeneca-CH-00813668AM

PATIENT

DRUGS (1)
  1. SYMBICORT [Suspect]
     Active Substance: BUDESONIDE\FORMOTEROL FUMARATE DIHYDRATE
     Indication: Asthma
     Route: 065

REACTIONS (8)
  - Streptococcal infection [Unknown]
  - Palpitations [Unknown]
  - Muscle spasms [Unknown]
  - Hypertension [Unknown]
  - Oropharyngeal pain [Unknown]
  - Inflammation [Unknown]
  - Pharyngitis [Unknown]
  - Hypokalaemia [Unknown]
